FAERS Safety Report 12487150 (Version 3)
Quarter: 2016Q4

REPORT INFORMATION
  Report Type: Spontaneous
  Country: CA (occurrence: CA)
  Receive Date: 20160622
  Receipt Date: 20161002
  Transmission Date: 20170207
  Serious: Yes (Other)
  Sender: FDA-Public Use
  Company Number: CA-ROCHE-1778657

PATIENT
  Age: 36 Year
  Sex: Male

DRUGS (1)
  1. XOLAIR [Suspect]
     Active Substance: OMALIZUMAB
     Indication: ASTHMA
     Dosage: 225 MG, BIW
     Route: 058
     Dates: start: 20150115

REACTIONS (5)
  - Asthma [Unknown]
  - Dyspnoea [Unknown]
  - Middle insomnia [Unknown]
  - Forced expiratory volume decreased [Unknown]
  - Wheezing [Unknown]

NARRATIVE: CASE EVENT DATE: 20160610
